FAERS Safety Report 16623355 (Version 1)
Quarter: 2019Q3

REPORT INFORMATION
  Report Type: Spontaneous
  Country: FR (occurrence: FR)
  Receive Date: 20190723
  Receipt Date: 20190723
  Transmission Date: 20191004
  Serious: Yes (Hospitalization)
  Sender: FDA-Public Use
  Company Number: FR-TEVA-2019-FR-1081674

PATIENT
  Age: 68 Year
  Sex: Female

DRUGS (5)
  1. IPRATROPIUM [Concomitant]
     Active Substance: IPRATROPIUM
     Indication: ASTHMA
     Dosage: TWO NEW SERIES OF THREE AEROSOL DOSES
     Route: 055
  2. TERBUTALINE [Suspect]
     Active Substance: TERBUTALINE
     Indication: ASTHMA
     Dosage: INITIAL DOSE
     Route: 055
  3. TERBUTALINE [Suspect]
     Active Substance: TERBUTALINE
     Dosage: TWO NEW SERIES OF THREE AEROSOL DOSES
     Route: 055
  4. SALBUTAMOL [Suspect]
     Active Substance: ALBUTEROL
     Indication: ASTHMA
     Dosage: RECEIVED AT HOME
     Route: 055
  5. IPRATROPIUM [Concomitant]
     Active Substance: IPRATROPIUM
     Indication: ASTHMA
     Dosage: INITIAL DOSE
     Route: 055

REACTIONS (3)
  - Metabolic acidosis [Recovering/Resolving]
  - Hyperlactacidaemia [Recovering/Resolving]
  - Treatment failure [Unknown]
